FAERS Safety Report 8339338-4 (Version None)
Quarter: 2012Q2

REPORT INFORMATION
  Report Type: 
  Country: None (occurrence: None)
  Receive Date: 20120507
  Receipt Date: 20120426
  Transmission Date: 20120825
  Serious: Yes (Hospitalization)
  Sender: FDA-Public Use
  Company Number: US-SANOFI-AVENTIS-2012SA029821

PATIENT
  Age: 73 Year
  Sex: Female

DRUGS (2)
  1. APIDRA [Suspect]
     Dosage: SLIDING SCALE 3-4 TIMES DAILY
     Route: 058
  2. SOLOSTAR [Suspect]

REACTIONS (3)
  - BLOOD GLUCOSE INCREASED [None]
  - CONVULSION [None]
  - KIDNEY INFECTION [None]
